FAERS Safety Report 23319328 (Version 1)
Quarter: 2023Q4

REPORT INFORMATION
  Report Type: Spontaneous
  Country: CN (occurrence: CN)
  Receive Date: 20231220
  Receipt Date: 20231220
  Transmission Date: 20240110
  Serious: Yes (Other)
  Sender: FDA-Public Use
  Company Number: None

PATIENT
  Age: 70 Year
  Sex: Male
  Weight: 85 kg

DRUGS (4)
  1. CYCLOPHOSPHAMIDE [Suspect]
     Active Substance: CYCLOPHOSPHAMIDE
     Indication: Chemotherapy
     Dosage: 0.2 G, ONE TIME IN ONE DAY, DILUTED WITH 250 ML OF SODIUM CHLORIDE, AT 7:47 HR
     Route: 041
     Dates: start: 20231124, end: 20231128
  2. CYCLOPHOSPHAMIDE [Suspect]
     Active Substance: CYCLOPHOSPHAMIDE
     Indication: Plasma cell myeloma
  3. SODIUM CHLORIDE [Suspect]
     Active Substance: SODIUM CHLORIDE
     Indication: Chemotherapy
     Dosage: 250 ML, ONE TIME IN ONE DAY, USED TO DILUTE 0.2 G OF CYCLOPHOSPHAMIDE, AT 7:47 HR
     Route: 041
     Dates: start: 20231124, end: 20231128
  4. SODIUM CHLORIDE [Suspect]
     Active Substance: SODIUM CHLORIDE
     Indication: Plasma cell myeloma

REACTIONS (2)
  - Nausea [Recovered/Resolved]
  - Alopecia [Recovered/Resolved]
